FAERS Safety Report 23916387 (Version 3)
Quarter: 2024Q2

REPORT INFORMATION
  Report Type: Spontaneous
  Country: BR (occurrence: BR)
  Receive Date: 20240529
  Receipt Date: 20240621
  Transmission Date: 20240715
  Serious: Yes (Other)
  Sender: FDA-Public Use
  Company Number: BR-ORGANON-O2405BRA001595

PATIENT
  Age: 35 Year
  Sex: Female
  Weight: 63 kg

DRUGS (5)
  1. ETONOGESTREL [Suspect]
     Active Substance: ETONOGESTREL
     Indication: Heavy menstrual bleeding
     Dosage: 1 IMPLANT (LEFT ARM)
     Route: 059
     Dates: start: 20220204
  2. ETONOGESTREL [Suspect]
     Active Substance: ETONOGESTREL
     Indication: Contraception
  3. ETONOGESTREL [Suspect]
     Active Substance: ETONOGESTREL
     Indication: Heavy menstrual bleeding
     Dosage: 1 IMPLANT
     Route: 059
  4. CONTRAVE [Concomitant]
     Active Substance: BUPROPION HYDROCHLORIDE\NALTREXONE HYDROCHLORIDE
     Indication: Weight control
     Dosage: 2 TABLETS PER DAY (BEFORE LUNCH AND BEFORE DINNER)
     Route: 048
     Dates: start: 2023
  5. PURAN [Concomitant]
     Active Substance: LEVOTHYROXINE SODIUM
     Indication: Hypothyroidism
     Dosage: 1 DOSAGE FORM, QD
     Route: 048

REACTIONS (5)
  - Carcinoembryonic antigen increased [Unknown]
  - Menometrorrhagia [Recovering/Resolving]
  - Dysmenorrhoea [Recovering/Resolving]
  - Drug ineffective for unapproved indication [Unknown]
  - Off label use [Unknown]

NARRATIVE: CASE EVENT DATE: 20220204
